FAERS Safety Report 9820511 (Version 2)
Quarter: 2014Q1

REPORT INFORMATION
  Report Type: Spontaneous
  Country: BR (occurrence: BR)
  Receive Date: 20140116
  Receipt Date: 20140128
  Transmission Date: 20141002
  Serious: Yes (Hospitalization, Other)
  Sender: FDA-Public Use
  Company Number: BR-PFIZER INC-2014011158

PATIENT
  Age: 69 Year
  Sex: Female

DRUGS (5)
  1. ATENOLOL [Suspect]
     Indication: ARRHYTHMIA
     Dosage: 50 MG, DAILY
     Route: 048
     Dates: start: 2004, end: 201311
  2. ATENOLOL [Suspect]
     Indication: HYPERTENSION
  3. BENICAR HCT [Suspect]
     Indication: HYPERTENSION
     Dosage: DAILY
     Route: 048
     Dates: start: 2004
  4. TAMOXIFEN [Suspect]
     Indication: BREAST CANCER
     Dosage: DAILY
     Route: 048
     Dates: start: 201301
  5. CRESTOR [Suspect]
     Indication: BLOOD CHOLESTEROL
     Dosage: 5 MG, DAILY
     Route: 048
     Dates: start: 2012

REACTIONS (3)
  - Breast cancer [Unknown]
  - Tachycardia [Recovered/Resolved]
  - Blood cholesterol abnormal [Recovered/Resolved]
